FAERS Safety Report 7411791-X (Version None)
Quarter: 2011Q2

REPORT INFORMATION
  Report Type: 
  Country: None (occurrence: None)
  Receive Date: 20110413
  Receipt Date: 20110117
  Transmission Date: 20111010
  Serious: No
  Sender: FDA-Public Use
  Company Number: US-BRISTOL-MYERS SQUIBB COMPANY-15498025

PATIENT
  Age: 7 Decade
  Sex: Male

DRUGS (2)
  1. ZOLOFT [Concomitant]
  2. ERBITUX [Suspect]
     Indication: COLORECTAL CANCER METASTATIC
     Dosage: APPROX 9 WKS
     Route: 042

REACTIONS (1)
  - RASH [None]
